FAERS Safety Report 6032290-6 (Version None)
Quarter: 2009Q1

REPORT INFORMATION
  Report Type: 
  Country: None (occurrence: None)
  Receive Date: 20090107
  Receipt Date: 20081227
  Transmission Date: 20090719
  Serious: Yes (Other)
  Sender: FDA-Public Use
  Company Number: CHPA2008US23460

PATIENT
  Age: 30 Year
  Sex: Female
  Weight: 81.6 kg

DRUGS (2)
  1. THERAFLU WARMING RELIEF COLD + CHEST CONG (NCH) (ACETAMINOPHEN (PARACE [Suspect]
     Indication: NASOPHARYNGITIS
     Dosage: 2 TSP, QD, ORAL
     Route: 048
     Dates: start: 20081225
  2. DRUG THERAPY NOS (DRUG THERAPY NOS) [Concomitant]

REACTIONS (5)
  - DISORIENTATION [None]
  - DIZZINESS [None]
  - DYSARTHRIA [None]
  - HYPERHIDROSIS [None]
  - MALAISE [None]
